FAERS Safety Report 19876605 (Version 1)
Quarter: 2021Q3

REPORT INFORMATION
  Report Type: Spontaneous
  Country: BR (occurrence: BR)
  Receive Date: 20210923
  Receipt Date: 20210923
  Transmission Date: 20211014
  Serious: Yes (Other)
  Sender: FDA-Public Use
  Company Number: BR-TAKEDA-2021TUS035153

PATIENT

DRUGS (1)
  1. VENVANSE [Suspect]
     Active Substance: LISDEXAMFETAMINE DIMESYLATE
     Indication: PRODUCT USED FOR UNKNOWN INDICATION
     Dosage: UNK
     Route: 065

REACTIONS (15)
  - Procrastination [Unknown]
  - Drug dependence [Unknown]
  - Adverse drug reaction [Unknown]
  - Drug ineffective [Unknown]
  - Vertigo [Unknown]
  - Inappropriate schedule of product administration [Unknown]
  - Anxiety [Unknown]
  - Agitation [Unknown]
  - Poor quality sleep [Unknown]
  - Insomnia [Unknown]
  - Therapeutic product effect increased [Unknown]
  - Off label use [Unknown]
  - Disturbance in attention [Unknown]
  - Nasopharyngitis [Unknown]
  - COVID-19 [Unknown]
